FAERS Safety Report 4595539-2 (Version None)
Quarter: 2005Q1

REPORT INFORMATION
  Report Type: 
  Country: None (occurrence: None)
  Receive Date: 20050224
  Receipt Date: 20050204
  Transmission Date: 20050727
  Serious: No
  Sender: FDA-Public Use
  Company Number: USA050289991

PATIENT
  Age: 15 Year
  Sex: Male
  Weight: 61 kg

DRUGS (2)
  1. STRATTERA [Suspect]
     Indication: ATTENTION DEFICIT/HYPERACTIVITY DISORDER
     Dosage: 60 MG
  2. LEXAPRO [Concomitant]

REACTIONS (3)
  - BLOOD BILIRUBIN INCREASED [None]
  - NASOPHARYNGITIS [None]
  - PYREXIA [None]
